FAERS Safety Report 4829534-2 (Version None)
Quarter: 2005Q4

REPORT INFORMATION
  Report Type: 
  Country: None (occurrence: None)
  Receive Date: 20051116
  Receipt Date: 20051107
  Transmission Date: 20060501
  Serious: Yes (Other)
  Sender: FDA-Public Use
  Company Number: 2005SE06451

PATIENT
  Age: 24248 Day
  Sex: Female

DRUGS (3)
  1. OMEPRAZOLE [Suspect]
     Indication: HELICOBACTER INFECTION
     Route: 048
     Dates: start: 20051028, end: 20051030
  2. BIAXIN [Suspect]
     Indication: HELICOBACTER INFECTION
     Route: 048
     Dates: start: 20051028, end: 20051030
  3. VELAMOX [Suspect]
     Indication: HELICOBACTER INFECTION
     Route: 048
     Dates: start: 20051028, end: 20051030

REACTIONS (1)
  - SUPRAVENTRICULAR TACHYCARDIA [None]
